FAERS Safety Report 5713114-0 (Version None)
Quarter: 2008Q2

REPORT INFORMATION
  Report Type: 
  Country: None (occurrence: None)
  Receive Date: 20080422
  Receipt Date: 20070319
  Transmission Date: 20081010
  Serious: No
  Sender: FDA-Public Use
  Company Number: US-BRISTOL-MYERS SQUIBB COMPANY-13718655

PATIENT
  Sex: Male
  Weight: 79 kg

DRUGS (3)
  1. HYDREA [Suspect]
     Indication: PLATELET COUNT INCREASED
     Dates: start: 20070101
  2. HYDROCHLOROTHIAZIDE [Concomitant]
  3. VITAMIN CAP [Concomitant]

REACTIONS (3)
  - DYSACUSIS [None]
  - DYSGEUSIA [None]
  - MUCOSAL DRYNESS [None]
